FAERS Safety Report 19908213 (Version 1)
Quarter: 2021Q4

REPORT INFORMATION
  Report Type: Spontaneous
  Country: GB (occurrence: GB)
  Receive Date: 20211001
  Receipt Date: 20211001
  Transmission Date: 20220303
  Serious: Yes (Life-Threatening, Disabling, Other)
  Sender: FDA-Public Use
  Company Number: GB-AMGEN-GBRSP2021148963

PATIENT
  Age: 87 Year
  Sex: Female
  Weight: 63.95 kg

DRUGS (4)
  1. PROLIA [Suspect]
     Active Substance: DENOSUMAB
     Indication: Osteoporosis
     Dosage: 60MG
     Route: 051
     Dates: start: 20140101, end: 20210923
  2. ETANERCEPT [Concomitant]
     Active Substance: ETANERCEPT
     Indication: Ill-defined disorder
     Dosage: UNK
  3. CLOPIDOGREL [Concomitant]
     Active Substance: CLOPIDOGREL BISULFATE
     Indication: Ill-defined disorder
     Dosage: UNK
  4. PERINDOPRIL [Concomitant]
     Active Substance: PERINDOPRIL
     Indication: Ill-defined disorder
     Dosage: UNK

REACTIONS (2)
  - Pancreatic carcinoma [Not Recovered/Not Resolved]
  - Medication error [Unknown]

NARRATIVE: CASE EVENT DATE: 20210923
